FAERS Safety Report 7080138-3 (Version None)
Quarter: 2010Q4

REPORT INFORMATION
  Report Type: 
  Country: None (occurrence: None)
  Receive Date: 20101102
  Receipt Date: 20101027
  Transmission Date: 20110411
  Serious: Yes (Death, Hospitalization)
  Sender: FDA-Public Use
  Company Number: US-BRISTOL-MYERS SQUIBB COMPANY-15361793

PATIENT
  Age: 60 Year
  Sex: Female

DRUGS (4)
  1. CETUXIMAB [Suspect]
     Indication: NON-SMALL CELL LUNG CANCER
     Dosage: 400MG/M2 ON DAY 1 OF CYCLE 1 250MG/M2 ON DAYS 8,15,22,29 AND 36 FROM 22SEP10-ONG LAST DOSE:22SEP10
     Route: 042
     Dates: start: 20100915
  2. CARBOPLATIN [Suspect]
     Indication: NON-SMALL CELL LUNG CANCER
     Dosage: 1 DF=6 AUC ON DAYS 1 AND 22
     Route: 042
     Dates: start: 20100915
  3. PACLITAXEL [Suspect]
     Indication: NON-SMALL CELL LUNG CANCER
     Dosage: LAST DOSE:15SEP10 ON DAY 1 AND 22
     Route: 042
     Dates: start: 20100915
  4. ZOFRAN [Concomitant]

REACTIONS (5)
  - CONSTIPATION [None]
  - DEHYDRATION [None]
  - DYSPNOEA [None]
  - HYPOXIA [None]
  - RESPIRATORY FAILURE [None]
